FAERS Safety Report 7398749-4 (Version None)
Quarter: 2011Q2

REPORT INFORMATION
  Report Type: 
  Country: None (occurrence: None)
  Receive Date: 20110401
  Receipt Date: 20110401
  Transmission Date: 20111010
  Serious: Yes (Other)
  Sender: FDA-Public Use
  Company Number: None

PATIENT
  Age: 54 Year
  Sex: Female
  Weight: 71.2147 kg

DRUGS (1)
  1. AVELOX [Suspect]
     Indication: PNEUMONIA
     Dosage: ONCE A DAY 10 DAYS
     Dates: start: 20110323, end: 20110325

REACTIONS (6)
  - FEELING ABNORMAL [None]
  - FATIGUE [None]
  - INSOMNIA [None]
  - MANIA [None]
  - NIGHTMARE [None]
  - TACHYPHRENIA [None]
